FAERS Safety Report 5394027-3 (Version None)
Quarter: 2007Q3

REPORT INFORMATION
  Report Type: 
  Country: None (occurrence: None)
  Receive Date: 20070723
  Receipt Date: 20070301
  Transmission Date: 20080115
  Serious: Yes (Disabling)
  Sender: FDA-Public Use
  Company Number: A0637030A

PATIENT
  Age: 58 Year
  Sex: Male
  Weight: 148.2 kg

DRUGS (6)
  1. AVANDIA [Suspect]
     Dosage: 8MG PER DAY
     Route: 048
     Dates: start: 20030901, end: 20070118
  2. INSULIN [Concomitant]
  3. SIMVASTATIN [Concomitant]
  4. COUMADIN [Concomitant]
     Indication: ATRIAL FIBRILLATION
  5. LISINOPRIL [Concomitant]
     Indication: HYPERTENSION
  6. GLYBURIDE AND METFORMIN HCL [Concomitant]

REACTIONS (5)
  - DYSPNOEA [None]
  - JOINT SWELLING [None]
  - MACULAR OEDEMA [None]
  - OEDEMA PERIPHERAL [None]
  - WEIGHT INCREASED [None]
